FAERS Safety Report 9859809 (Version 1)
Quarter: 2014Q1

REPORT INFORMATION
  Report Type: Spontaneous
  Country: US (occurrence: US)
  Receive Date: 20140131
  Receipt Date: 20140131
  Transmission Date: 20141002
  Serious: Yes (Death)
  Sender: FDA-Public Use
  Company Number: US-ACTELION-A-NJ2014-94146

PATIENT
  Age: 66 Year
  Sex: Female

DRUGS (3)
  1. VELETRI [Suspect]
     Indication: COR PULMONALE CHRONIC
     Dosage: 14 NG/KG, PER MIN
     Route: 042
     Dates: start: 20130425
  2. SILDENAFIL [Concomitant]
  3. TYVASO [Concomitant]

REACTIONS (1)
  - Death [Fatal]
